FAERS Safety Report 25488245 (Version 2)
Quarter: 2025Q3

REPORT INFORMATION
  Report Type: Spontaneous
  Country: JP (occurrence: JP)
  Receive Date: 20250627
  Receipt Date: 20250913
  Transmission Date: 20251021
  Serious: Yes (Hospitalization)
  Sender: MERCK SHARP & DOHME LLC
  Company Number: JP-009507513-2277763

PATIENT
  Age: 66 Year
  Sex: Female
  Weight: 52 kg

DRUGS (3)
  1. KEYTRUDA [Suspect]
     Active Substance: PEMBROLIZUMAB
     Indication: Triple negative breast cancer
     Dosage: 2 CYCLES
     Route: 041
     Dates: start: 20250220, end: 20250313
  2. CARBOPLATIN [Suspect]
     Active Substance: CARBOPLATIN
     Indication: Triple negative breast cancer
     Route: 065
     Dates: start: 2025, end: 20250313
  3. PACLITAXEL [Suspect]
     Active Substance: PACLITAXEL
     Indication: Triple negative breast cancer
     Dosage: 2 CYCLES
     Route: 065
     Dates: start: 2025, end: 20250313

REACTIONS (4)
  - Nausea [Recovering/Resolving]
  - Nephropathy toxic [Unknown]
  - Hypokalaemia [Not Recovered/Not Resolved]
  - Zinc deficiency [Unknown]

NARRATIVE: CASE EVENT DATE: 20250313
